FAERS Safety Report 25930289 (Version 1)
Quarter: 2025Q4

REPORT INFORMATION
  Report Type: Spontaneous
  Country: US (occurrence: US)
  Receive Date: 20251016
  Receipt Date: 20251016
  Transmission Date: 20260117
  Serious: Yes (Other)
  Sender: AMGEN
  Company Number: US-AMGEN-USASP2025203737

PATIENT

DRUGS (2)
  1. BEVACIZUMAB [Suspect]
     Active Substance: BEVACIZUMAB
     Indication: Ovarian cancer
     Dosage: UNK
     Route: 065
  2. SACITUZUMAB DROZUNTECAN [Suspect]
     Active Substance: SACITUZUMAB DROZUNTECAN
     Indication: Ovarian cancer
     Dosage: UNK,  MG/KG, Q3WK
     Route: 040

REACTIONS (1)
  - Ovarian cancer [Unknown]
